FAERS Safety Report 8185396-X (Version None)
Quarter: 2012Q1

REPORT INFORMATION
  Report Type: 
  Country: None (occurrence: None)
  Receive Date: 20120305
  Receipt Date: 20120301
  Transmission Date: 20120608
  Serious: Yes (Other)
  Sender: FDA-Public Use
  Company Number: PHEH2012US004917

PATIENT
  Sex: Female

DRUGS (1)
  1. DIOVAN HCT [Suspect]

REACTIONS (1)
  - THROMBOSIS [None]
